FAERS Safety Report 7989167-6 (Version None)
Quarter: 2011Q4

REPORT INFORMATION
  Report Type: 
  Country: None (occurrence: None)
  Receive Date: 20111219
  Receipt Date: 20111208
  Transmission Date: 20120403
  Serious: Yes (Other)
  Sender: FDA-Public Use
  Company Number: GB-BRISTOL-MYERS SQUIBB COMPANY-16289134

PATIENT
  Age: 60 Year

DRUGS (7)
  1. CETIRIZINE [Suspect]
  2. METFORMIN HCL [Suspect]
  3. DOXAZOSIN MESYLATE [Suspect]
  4. COLCHICINE [Suspect]
  5. MIRTAZAPINE [Suspect]
     Indication: DEPRESSION
  6. ALLOPURINOL [Suspect]
  7. VALSARTAN [Suspect]

REACTIONS (1)
  - PANCREATITIS ACUTE [None]
